FAERS Safety Report 5685235-2 (Version None)
Quarter: 2008Q1

REPORT INFORMATION
  Report Type: 
  Country: None (occurrence: None)
  Receive Date: 20080328
  Receipt Date: 20080317
  Transmission Date: 20080703
  Serious: Yes (Hospitalization)
  Sender: FDA-Public Use
  Company Number: US-ELI_LILLY_AND_COMPANY-US200801004875

PATIENT
  Age: 79 Year
  Sex: Male

DRUGS (4)
  1. CYMBALTA [Suspect]
     Indication: DEPRESSION
     Dosage: 60 MG, UNK
     Dates: start: 20070901
  2. XANAX [Concomitant]
  3. RITALIN [Concomitant]
  4. REMERON [Concomitant]

REACTIONS (1)
  - DYSPHAGIA [None]
